FAERS Safety Report 8951063 (Version 1)
Quarter: 2012Q4

REPORT INFORMATION
  Report Type: Spontaneous
  Country: US (occurrence: None)
  Receive Date: 20121129
  Receipt Date: 20121129
  Transmission Date: 20130627
  Serious: Yes (Hospitalization)
  Sender: FDA-Public Use
  Company Number: CLCY20120168

PATIENT
  Sex: Male

DRUGS (7)
  1. COLCRYS [Suspect]
     Indication: PERICARDITIS
     Route: 048
     Dates: start: 20121115
  2. COLCRYS [Suspect]
     Indication: PERICARDITIS
     Route: 048
     Dates: start: 20121101, end: 20121114
  3. COLCRYS [Suspect]
     Indication: PERICARDITIS
     Route: 048
     Dates: start: 2012, end: 20121031
  4. COLCRYS [Suspect]
     Indication: PERICARDITIS
     Route: 048
     Dates: start: 2012, end: 2012
  5. SULFAMETHOXAZOLE/TRIMETHOPRIM [Suspect]
     Indication: INFUSION SITE INFECTION
     Dosage: 1 dosage forms
     Route: 048
     Dates: start: 201211, end: 201211
  6. LEVOFLOXACIN [Suspect]
     Indication: PNEUMONIA
     Dosage: 1 dosage forms
     Route: 048
     Dates: start: 201211, end: 201211
  7. DEXILANT [Suspect]
     Indication: ACID REFLUX (ESOPHAGEAL)
     Route: 048
     Dates: start: 20121112

REACTIONS (7)
  - Pneumonia [None]
  - Blood count abnormal [None]
  - Infusion site infection [None]
  - Prescribed overdose [None]
  - Off label use [None]
  - Renal pain [None]
  - Decreased appetite [None]
